FAERS Safety Report 17682224 (Version 4)
Quarter: 2025Q2

REPORT INFORMATION
  Report Type: Spontaneous
  Country: IT (occurrence: IT)
  Receive Date: 20200418
  Receipt Date: 20250624
  Transmission Date: 20250717
  Serious: Yes (Death, Life-Threatening, Hospitalization, Other)
  Sender: AUROBINDO
  Company Number: IT-TEVA-2020-IT-1218819

PATIENT
  Age: 61 Year
  Sex: Male

DRUGS (15)
  1. MEROPENEM [Suspect]
     Active Substance: MEROPENEM
     Indication: Antibiotic prophylaxis
     Route: 065
  2. THYMOCYTE IMMUNE GLOBULIN NOS [Suspect]
     Active Substance: THYMOCYTE IMMUNE GLOBULIN NOS
     Indication: Immunosuppressant drug therapy
     Dosage: 1.5 MILLIGRAM/KILOGRAM, ONCE A DAY
     Route: 065
  3. THYMOCYTE IMMUNE GLOBULIN NOS [Suspect]
     Active Substance: THYMOCYTE IMMUNE GLOBULIN NOS
     Indication: Adjuvant therapy
     Route: 065
  4. THYMOCYTE IMMUNE GLOBULIN NOS [Suspect]
     Active Substance: THYMOCYTE IMMUNE GLOBULIN NOS
     Indication: Graft versus host disease
  5. CASPOFUNGIN [Suspect]
     Active Substance: CASPOFUNGIN
     Indication: Antifungal prophylaxis
     Route: 065
  6. DAPTOMYCIN [Suspect]
     Active Substance: DAPTOMYCIN
     Indication: Antibiotic prophylaxis
     Route: 065
  7. EVEROLIMUS [Suspect]
     Active Substance: EVEROLIMUS
     Indication: Immunosuppressant drug therapy
     Dosage: 3 MILLIGRAM, ONCE A DAY
     Route: 065
  8. ETANERCEPT [Suspect]
     Active Substance: ETANERCEPT
     Indication: Adjuvant therapy
     Route: 065
  9. ETANERCEPT [Suspect]
     Active Substance: ETANERCEPT
     Indication: Immunosuppressant drug therapy
     Dosage: 50 MILLIGRAM, EVERY TWO HOURS
     Route: 058
  10. ETANERCEPT [Suspect]
     Active Substance: ETANERCEPT
     Indication: Graft versus host disease
     Dosage: 50 MILLIGRAM, EVERY WEEK
     Route: 058
  11. GANCICLOVIR [Suspect]
     Active Substance: GANCICLOVIR
     Indication: Antiviral treatment
     Dosage: 5 MILLIGRAM/KILOGRAM, ONCE A DAY
     Route: 065
  12. METHYLPREDNISOLONE [Suspect]
     Active Substance: METHYLPREDNISOLONE
     Indication: Immunosuppressant drug therapy
     Dosage: 20 MILLIGRAM, ONCE A DAY
     Route: 065
  13. METHYLPREDNISOLONE [Suspect]
     Active Substance: METHYLPREDNISOLONE
     Dosage: 40 MILLIGRAM, ONCE A DAY
     Route: 065
  14. TACROLIMUS [Suspect]
     Active Substance: TACROLIMUS
     Indication: Immunosuppressant drug therapy
     Dosage: 0.04 MILLIGRAM/KILOGRAM, ONCE A DAY
     Route: 065
  15. TACROLIMUS [Suspect]
     Active Substance: TACROLIMUS
     Dosage: 0.08 MILLIGRAM/KILOGRAM, ONCE A DAY
     Route: 065

REACTIONS (18)
  - Enterococcal infection [Fatal]
  - Aspergillus infection [Fatal]
  - Cytomegalovirus infection [Fatal]
  - Septic shock [Fatal]
  - Multiple organ dysfunction syndrome [Fatal]
  - Chimerism [Unknown]
  - Enteritis [Unknown]
  - Malnutrition [Unknown]
  - Bone marrow disorder [Unknown]
  - Aplastic anaemia [Unknown]
  - Systemic inflammatory response syndrome [Unknown]
  - Graft versus host disease in skin [Unknown]
  - Diarrhoea [Unknown]
  - Intestinal haemorrhage [Unknown]
  - Haemoglobin decreased [Unknown]
  - Leukopenia [Recovering/Resolving]
  - Platelet count decreased [Unknown]
  - Drug ineffective [Unknown]

NARRATIVE: CASE EVENT DATE: 20160101
